FAERS Safety Report 7860304-7 (Version None)
Quarter: 2011Q4

REPORT INFORMATION
  Report Type: 
  Country: None (occurrence: None)
  Receive Date: 20111027
  Receipt Date: 20111020
  Transmission Date: 20120403
  Serious: Yes (Hospitalization)
  Sender: FDA-Public Use
  Company Number: CA-AMGEN-CANSP2011041474

PATIENT
  Age: 59 Year
  Sex: Female

DRUGS (3)
  1. ENBREL [Suspect]
     Indication: RHEUMATOID ARTHRITIS
     Dosage: 25 MG, 2 TIMES/WK
     Dates: start: 20030616
  2. TYLENOL (CAPLET) [Concomitant]
     Dosage: UNK UNK, PRN
  3. NAPROXEN [Concomitant]
     Dosage: 500 MG, UNK

REACTIONS (1)
  - BREAST CANCER FEMALE [None]
